FAERS Safety Report 11254953 (Version 1)
Quarter: 2015Q3

REPORT INFORMATION
  Report Type: Spontaneous
  Country: GB (occurrence: GB)
  Receive Date: 20150709
  Receipt Date: 20150709
  Transmission Date: 20151125
  Serious: Yes (Hospitalization)
  Sender: FDA-Public Use
  Company Number: GB-009507513-1507GBR003265

PATIENT
  Age: 50 Year
  Sex: Male

DRUGS (2)
  1. VELCADE [Suspect]
     Active Substance: BORTEZOMIB
     Indication: PLASMA CELL MYELOMA
  2. DEXAMETHASONE. [Suspect]
     Active Substance: DEXAMETHASONE
     Indication: PLASMA CELL MYELOMA
     Route: 065

REACTIONS (9)
  - Febrile neutropenia [Unknown]
  - Fatigue [Unknown]
  - Neuropathy peripheral [Unknown]
  - Constipation [Unknown]
  - Diarrhoea [Unknown]
  - Thrombocytopenia [Unknown]
  - Nausea [Unknown]
  - Anaemia [Unknown]
  - Psychiatric symptom [Unknown]
